FAERS Safety Report 5210459-8 (Version None)
Quarter: 2007Q1

REPORT INFORMATION
  Report Type: 
  Country: None (occurrence: None)
  Receive Date: 20070116
  Receipt Date: 20070116
  Transmission Date: 20070707
  Serious: Yes (Disabling)
  Sender: FDA-Public Use
  Company Number: None

PATIENT
  Sex: Female
  Weight: 81.6475 kg

DRUGS (3)
  1. FLEETS ORAL PHOSPHOSODA PREP [Suspect]
     Indication: COLONOSCOPY
     Dosage: UNIT DOSE ONE DAY ORAL
     Route: 048
     Dates: start: 20050510
  2. BENICAR [Concomitant]
  3. ADVAIR DISKUS 100/50 [Concomitant]

REACTIONS (3)
  - BLOOD CREATININE INCREASED [None]
  - BLOOD UREA INCREASED [None]
  - HYPERTENSION [None]
